FAERS Safety Report 5601038-9 (Version None)
Quarter: 2008Q1

REPORT INFORMATION
  Report Type: 
  Country: None (occurrence: None)
  Receive Date: 20080124
  Receipt Date: 20080116
  Transmission Date: 20080703
  Serious: Yes (Other)
  Sender: FDA-Public Use
  Company Number: NL-WYE-G00810407

PATIENT
  Sex: Female

DRUGS (3)
  1. EFFEXOR XR [Suspect]
     Indication: DEPRESSION
     Route: 048
     Dates: start: 20060404
  2. EFFEXOR XR [Suspect]
     Indication: ANXIETY
     Route: 048
  3. EFFEXOR XR [Suspect]
     Route: 048

REACTIONS (7)
  - DEPRESSION [None]
  - DIZZINESS [None]
  - DRUG DEPENDENCE [None]
  - DRUG WITHDRAWAL SYNDROME [None]
  - NAUSEA [None]
  - RESTLESSNESS [None]
  - TREMOR [None]
